FAERS Safety Report 7301511-1 (Version None)
Quarter: 2011Q1

REPORT INFORMATION
  Report Type: 
  Country: None (occurrence: None)
  Receive Date: 20110218
  Receipt Date: 20100920
  Transmission Date: 20110831
  Serious: Yes (Other)
  Sender: FDA-Public Use
  Company Number: US-BRISTOL-MYERS SQUIBB COMPANY-15296452

PATIENT
  Age: 42 Year
  Sex: Female

DRUGS (1)
  1. KENALOG [Suspect]
     Dosage: LOT # 8C38459 WITH EXP DATE:APR2010 19MAR09:20MG
     Route: 023
     Dates: start: 20090115

REACTIONS (3)
  - PAIN IN EXTREMITY [None]
  - DEPRESSION [None]
  - INJECTION SITE ATROPHY [None]
